FAERS Safety Report 6681388-8 (Version None)
Quarter: 2010Q2

REPORT INFORMATION
  Report Type: 
  Country: None (occurrence: None)
  Receive Date: 20100414
  Receipt Date: 20100407
  Transmission Date: 20101027
  Serious: Yes (Other)
  Sender: FDA-Public Use
  Company Number: B0600230A

PATIENT
  Sex: Female

DRUGS (11)
  1. PAXIL [Suspect]
     Indication: DEPRESSION
     Route: 048
     Dates: end: 20091202
  2. ZOLOFT [Suspect]
     Indication: DRUG USE FOR UNKNOWN INDICATION
     Dosage: 25MG PER DAY
     Route: 048
  3. CLONAZEPAM [Concomitant]
     Indication: DRUG USE FOR UNKNOWN INDICATION
     Route: 048
     Dates: start: 20091026
  4. DIAZEPAM [Concomitant]
     Dosage: 10MG PER DAY
     Route: 048
     Dates: start: 20091024
  5. DIAZEPAM [Concomitant]
     Dosage: 15MG PER DAY
     Route: 048
     Dates: start: 20091026
  6. SENIRAN [Concomitant]
     Indication: DEPRESSION
     Dosage: 30MG PER DAY
     Route: 048
     Dates: start: 20060101
  7. MINZAIN [Concomitant]
     Indication: DEPRESSION
     Route: 048
     Dates: start: 20060101
  8. FLUNITRAZEPAM [Concomitant]
     Indication: DEPRESSION
     Route: 048
     Dates: start: 20060101
  9. CHINESE MEDICATION [Concomitant]
     Dosage: 7.5G PER DAY
     Route: 048
     Dates: start: 20091026
  10. U PAN [Concomitant]
     Dosage: 1.5MG PER DAY
     Route: 048
     Dates: start: 20091104
  11. FLUNITRAZEPAM [Concomitant]
     Route: 048

REACTIONS (11)
  - ACTIVATION SYNDROME [None]
  - ANXIETY [None]
  - DECREASED APPETITE [None]
  - DIARRHOEA [None]
  - DIZZINESS [None]
  - DRUG WITHDRAWAL SYNDROME [None]
  - IRRITABILITY [None]
  - NAUSEA [None]
  - PALPITATIONS [None]
  - RESTLESSNESS [None]
  - TACHYCARDIA [None]
